FAERS Safety Report 10706208 (Version 3)
Quarter: 2015Q2

REPORT INFORMATION
  Report Type: Report from Study
  Country: BR (occurrence: BR)
  Receive Date: 20150113
  Receipt Date: 20150527
  Transmission Date: 20150821
  Serious: Yes (Disabling, Other)
  Sender: FDA-Public Use
  Company Number: BR-ABBVIE-15K-020-1330497-00

PATIENT
  Age: 58 Year
  Sex: Female
  Weight: 37 kg

DRUGS (14)
  1. METHOTREXATE [Concomitant]
     Active Substance: METHOTREXATE
     Indication: ARTHRITIS
  2. OMEPRAZOLE. [Concomitant]
     Active Substance: OMEPRAZOLE
     Indication: PROPHYLAXIS
  3. OSTEOFIX D3 [Concomitant]
     Indication: BONE DISORDER
     Route: 048
     Dates: start: 2008
  4. CHOLECALCIFEROL [Concomitant]
     Active Substance: CHOLECALCIFEROL
     Indication: BONE DISORDER
  5. CALCIUM/VITAMIN/MINERALS [Concomitant]
     Indication: ARTHROPATHY
     Route: 048
     Dates: start: 2008
  6. FOLIC ACID. [Concomitant]
     Active Substance: FOLIC ACID
     Indication: ANAEMIA
  7. OMEPRAZOLE. [Concomitant]
     Active Substance: OMEPRAZOLE
     Indication: GASTRITIS
  8. METHOTREXATE [Concomitant]
     Active Substance: METHOTREXATE
     Indication: PAIN
     Route: 048
  9. OMEPRAZOLE. [Concomitant]
     Active Substance: OMEPRAZOLE
     Indication: GASTRIC DISORDER
     Route: 048
     Dates: start: 2003
  10. MAGNESIUM W/VITAMIN B6 [Concomitant]
     Indication: VITAMIN SUPPLEMENTATION
     Route: 048
     Dates: start: 201412
  11. HUMIRA [Suspect]
     Active Substance: ADALIMUMAB
     Indication: RHEUMATOID ARTHRITIS
     Route: 058
     Dates: start: 20100211
  12. CHOLECALCIFEROL [Concomitant]
     Active Substance: CHOLECALCIFEROL
     Indication: VITAMIN SUPPLEMENTATION
     Route: 048
     Dates: start: 201502
  13. TECNOMET [Concomitant]
     Active Substance: METHOTREXATE
     Indication: RHEUMATOID ARTHRITIS
     Route: 048
     Dates: start: 201002
  14. FOLIC ACID. [Concomitant]
     Active Substance: FOLIC ACID
     Indication: ANAEMIA PROPHYLAXIS
     Route: 048

REACTIONS (8)
  - Peripheral swelling [Not Recovered/Not Resolved]
  - Bone pain [Recovered/Resolved]
  - Hyperkeratosis [Recovered/Resolved]
  - Mobility decreased [Not Recovered/Not Resolved]
  - Muscle spasms [Not Recovered/Not Resolved]
  - Pain in extremity [Not Recovered/Not Resolved]
  - Full blood count abnormal [Recovered/Resolved]
  - Ligament sprain [Unknown]

NARRATIVE: CASE EVENT DATE: 2014
